FAERS Safety Report 12725636 (Version 1)
Quarter: 2016Q3

REPORT INFORMATION
  Report Type: Spontaneous
  Country: CN (occurrence: CN)
  Receive Date: 20160908
  Receipt Date: 20160908
  Transmission Date: 20161109
  Serious: Yes (Other)
  Sender: FDA-Public Use
  Company Number: CN-ABBVIE-16P-035-1721636-00

PATIENT
  Age: 22 Year
  Sex: Male

DRUGS (2)
  1. DEPAKINE CHRONO [Suspect]
     Active Substance: VALPROATE SODIUM
     Indication: EPILEPSY
     Dosage: EXTENDED RELEASE
     Route: 048
     Dates: start: 2012, end: 201602
  2. DEPAKINE CHRONO [Suspect]
     Active Substance: VALPROATE SODIUM
     Dosage: EXTENDED RELEASE; AT BEDTIME
     Route: 048
     Dates: start: 201602

REACTIONS (3)
  - Epilepsy [Recovered/Resolved]
  - Hallucination [Recovered/Resolved]
  - Head titubation [Recovered/Resolved]

NARRATIVE: CASE EVENT DATE: 201602
